FAERS Safety Report 24532185 (Version 1)
Quarter: 2024Q4

REPORT INFORMATION
  Report Type: Spontaneous
  Country: CN (occurrence: CN)
  Receive Date: 20241022
  Receipt Date: 20241022
  Transmission Date: 20250114
  Serious: Yes (Hospitalization)
  Sender: GILEAD
  Company Number: CN-GILEAD-2024-0691194

PATIENT
  Age: 65 Year
  Sex: Male
  Weight: 70 kg

DRUGS (2)
  1. TRODELVY [Suspect]
     Active Substance: SACITUZUMAB GOVITECAN-HZIY
     Indication: Triple negative breast cancer
     Dosage: 540 MG, QD
     Route: 041
     Dates: start: 20240905, end: 20240905
  2. SODIUM CHLORIDE [Concomitant]
     Active Substance: SODIUM CHLORIDE
     Dosage: 250 ML
     Route: 041

REACTIONS (1)
  - Blood disorder [Recovering/Resolving]

NARRATIVE: CASE EVENT DATE: 20240906
